FAERS Safety Report 20698160 (Version 1)
Quarter: 2022Q2

REPORT INFORMATION
  Report Type: Spontaneous
  Country: US (occurrence: US)
  Receive Date: 20220412
  Receipt Date: 20220412
  Transmission Date: 20220721
  Serious: Yes (Other)
  Sender: FDA-Public Use
  Company Number: US-SA-SAC20220408001578

PATIENT
  Sex: Female

DRUGS (3)
  1. DUPIXENT [Suspect]
     Active Substance: DUPILUMAB
     Indication: Dermatitis atopic
     Dosage: 300 MG, QOW
     Route: 058
  2. ENTRESTO [Concomitant]
     Active Substance: SACUBITRIL\VALSARTAN
     Dosage: UNK, BID
  3. DIGOXIN [Concomitant]
     Active Substance: DIGOXIN

REACTIONS (3)
  - Cardiac failure [Recovering/Resolving]
  - Cardiomyopathy [Recovering/Resolving]
  - Blood pressure decreased [Recovering/Resolving]
